FAERS Safety Report 8269885-5 (Version None)
Quarter: 2012Q2

REPORT INFORMATION
  Report Type: 
  Country: None (occurrence: None)
  Receive Date: 20120410
  Receipt Date: 20120403
  Transmission Date: 20120825
  Serious: No
  Sender: FDA-Public Use
  Company Number: US-PFIZER INC-2012060133

PATIENT
  Sex: Female

DRUGS (2)
  1. TOVIAZ [Suspect]
     Indication: HYPERTONIC BLADDER
     Dosage: 4 MG, UNK
     Dates: start: 20120101
  2. TOVIAZ [Suspect]
     Indication: URINARY TRACT INFECTION
     Dosage: 8 MG, UNK
     Dates: start: 20120301, end: 20120301

REACTIONS (8)
  - ABDOMINAL PAIN [None]
  - DYSPEPSIA [None]
  - POLLAKIURIA [None]
  - NAUSEA [None]
  - ABDOMINAL PAIN UPPER [None]
  - CONSTIPATION [None]
  - ABDOMINAL DISCOMFORT [None]
  - VOMITING [None]
